FAERS Safety Report 8758980 (Version 2)
Quarter: 2012Q4

REPORT INFORMATION
  Report Type: 
  Country: DE (occurrence: DE)
  Receive Date: 20120829
  Receipt Date: 20120917
  Transmission Date: 20130627
  Serious: No
  Sender: FDA-Public Use
  Company Number: DE-AMGEN-DEUSP2012032851

PATIENT
  Age: 70 Year
  Sex: Female
  Weight: 80 kg

DRUGS (3)
  1. ENBREL [Suspect]
     Indication: PSORIASIS
     Dosage: 50 mg, weekly
     Route: 058
     Dates: start: 20111205
  2. ENBREL [Suspect]
     Dosage: 50 mg, two times a week
     Route: 058
     Dates: start: 20111205
  3. ENBREL [Suspect]
     Dosage: 50 mg, weekly
     Dates: start: 20120320

REACTIONS (2)
  - Pruritus [Not Recovered/Not Resolved]
  - Alopecia effluvium [Recovered/Resolved]
